FAERS Safety Report 8565196-9 (Version None)
Quarter: 2012Q3

REPORT INFORMATION
  Report Type: 
  Country: None (occurrence: None)
  Receive Date: 20120803
  Receipt Date: 20120725
  Transmission Date: 20120928
  Serious: Yes (Death, Hospitalization)
  Sender: FDA-Public Use
  Company Number: US-GLAXOSMITHKLINE-A0980293A

PATIENT
  Age: 62 Year
  Sex: Female
  Weight: 59.1 kg

DRUGS (1)
  1. VOTRIENT [Suspect]
     Indication: PRODUCT USED FOR UNKNOWN INDICATION
     Dosage: 1TAB PER DAY
     Route: 065
     Dates: start: 20120410, end: 20120512

REACTIONS (5)
  - RESPIRATORY PARALYSIS [None]
  - PARALYSIS [None]
  - SARCOMA [None]
  - METASTASES TO SPINE [None]
  - DRUG INEFFECTIVE [None]
